FAERS Safety Report 9412852 (Version 1)
Quarter: 2013Q3

REPORT INFORMATION
  Report Type: Spontaneous
  Country: GB (occurrence: GB)
  Receive Date: 20130722
  Receipt Date: 20130722
  Transmission Date: 20140515
  Serious: Yes (Hospitalization)
  Sender: FDA-Public Use
  Company Number: PHHY2013GB075590

PATIENT
  Age: 58 Year
  Sex: Male

DRUGS (5)
  1. RAMIPRIL [Suspect]
     Route: 048
  2. METFORMIN [Suspect]
     Indication: TYPE 2 DIABETES MELLITUS
     Route: 048
  3. BISOPROLOL [Concomitant]
  4. GLICLAZIDE [Concomitant]
  5. SAXAGLIPTIN [Concomitant]

REACTIONS (4)
  - Renal failure acute [Recovering/Resolving]
  - Diarrhoea [Unknown]
  - Dehydration [Recovering/Resolving]
  - Anuria [Unknown]
